FAERS Safety Report 20401710 (Version 2)
Quarter: 2022Q1

REPORT INFORMATION
  Report Type: Spontaneous
  Country: US (occurrence: US)
  Receive Date: 20220131
  Receipt Date: 20220201
  Transmission Date: 20220423
  Serious: Yes (Hospitalization, Other)
  Sender: FDA-Public Use
  Company Number: US-ABBVIE-21K-163-4169153-00

PATIENT
  Age: 36 Year
  Sex: Female
  Weight: 140.74 kg

DRUGS (1)
  1. HUMIRA [Suspect]
     Active Substance: ADALIMUMAB
     Indication: Hidradenitis
     Route: 058
     Dates: start: 202108

REACTIONS (2)
  - Dermatofibrosarcoma protuberans [Unknown]
  - Device issue [Unknown]

NARRATIVE: CASE EVENT DATE: 20211001
